FAERS Safety Report 13563390 (Version 3)
Quarter: 2017Q2

REPORT INFORMATION
  Report Type: Report from Study
  Country: BR (occurrence: BR)
  Receive Date: 20170519
  Receipt Date: 20170630
  Transmission Date: 20170830
  Serious: Yes (Death, Life-Threatening)
  Sender: FDA-Public Use
  Company Number: BR-ALLERGAN-1719735US

PATIENT
  Age: 67 Year
  Sex: Male

DRUGS (14)
  1. CALCIUM GLUCONATE. [Concomitant]
     Active Substance: CALCIUM GLUCONATE
     Indication: PRODUCT USED FOR UNKNOWN INDICATION
  2. ATENOLOL. [Concomitant]
     Active Substance: ATENOLOL
     Indication: HYPERTENSION
     Dosage: 25 MG, SINGLE
     Route: 048
     Dates: start: 20170307, end: 20170419
  3. ASA [Concomitant]
     Active Substance: ASPIRIN
     Indication: PRODUCT USED FOR UNKNOWN INDICATION
  4. CEFEPIME [Concomitant]
     Active Substance: CEFEPIME HYDROCHLORIDE
     Indication: INFECTION
     Dosage: 6 G, TID
     Route: 042
  5. SIMVASTATIN. [Concomitant]
     Active Substance: SIMVASTATIN
     Indication: INFARCTION
     Dosage: 20 MG, SINGLE
     Route: 048
     Dates: start: 20170307, end: 20170419
  6. CEFTAZIDIME;AVIBACTAM UNK [Suspect]
     Active Substance: AVIBACTAM SODIUM\CEFTAZIDIME
     Indication: URINARY TRACT INFECTION
     Dosage: UNK, Q8HR
     Route: 042
     Dates: start: 20170413
  7. SALICYLIC ACID. [Concomitant]
     Active Substance: SALICYLIC ACID
     Indication: INFARCTION
     Dosage: 100 MG, SINGLE
     Route: 048
     Dates: start: 20170307, end: 20170419
  8. CLOPIDOGREL [Concomitant]
     Active Substance: CLOPIDOGREL BISULFATE
     Indication: CEREBROVASCULAR ACCIDENT
     Dates: start: 20170307, end: 20170419
  9. RANITIDINE. [Concomitant]
     Active Substance: RANITIDINE
     Indication: HAEMORRHAGIC DISORDER
     Dosage: 300 MG, BID
     Route: 048
     Dates: start: 20170307, end: 20170419
  10. ENOXAPARIN [Concomitant]
     Active Substance: ENOXAPARIN
     Indication: THROMBOSIS
     Dosage: 120 MG, BID
     Route: 058
     Dates: start: 20170328, end: 20170419
  11. POTASSIUM PHOSPHATE DIBASIC [Concomitant]
     Indication: PRODUCT USED FOR UNKNOWN INDICATION
  12. MAGNESIUM SULFATE. [Concomitant]
     Active Substance: MAGNESIUM SULFATE
     Indication: PRODUCT USED FOR UNKNOWN INDICATION
  13. INSULIN [Concomitant]
     Active Substance: INSULIN NOS
     Indication: PRODUCT USED FOR UNKNOWN INDICATION
  14. METOCLOPRAMIDE. [Concomitant]
     Active Substance: METOCLOPRAMIDE
     Indication: PRODUCT USED FOR UNKNOWN INDICATION

REACTIONS (6)
  - Septic shock [Fatal]
  - Acute kidney injury [Fatal]
  - Haematuria [Unknown]
  - Skin lesion [Unknown]
  - Leukocytosis [Unknown]
  - Skin haemorrhage [Unknown]

NARRATIVE: CASE EVENT DATE: 20170414
